FAERS Safety Report 5646511-2 (Version None)
Quarter: 2008Q1

REPORT INFORMATION
  Report Type: 
  Country: None (occurrence: None)
  Receive Date: 20080228
  Receipt Date: 20080228
  Transmission Date: 20080703
  Serious: Yes (Hospitalization)
  Sender: FDA-Public Use
  Company Number: None

PATIENT
  Sex: Female

DRUGS (5)
  1. INSULIN PUMP [Suspect]
     Indication: DIABETES MELLITUS
     Dosage: 0.8 UNITS OR CC/HR (THERAPY DATES: PRIOR TO ADMISSION)
  2. ZOLOFT [Concomitant]
  3. PROZAC [Concomitant]
  4. M.V.I. [Concomitant]
  5. ASPIRIN [Concomitant]

REACTIONS (2)
  - BLOOD GLUCOSE DECREASED [None]
  - TREATMENT NONCOMPLIANCE [None]
